FAERS Safety Report 7475856-9 (Version None)
Quarter: 2011Q2

REPORT INFORMATION
  Report Type: 
  Country: None (occurrence: None)
  Receive Date: 20110512
  Receipt Date: 20110321
  Transmission Date: 20111010
  Serious: Yes (Hospitalization)
  Sender: FDA-Public Use
  Company Number: CHPA2011FR04344

PATIENT
  Sex: Male

DRUGS (7)
  1. AMOXICILLIN [Suspect]
     Indication: TONSILLITIS
     Dosage: 1 G, TID
     Route: 048
     Dates: start: 20101223, end: 20101226
  2. LAMISIL [Suspect]
     Indication: SECRETION DISCHARGE
     Dosage: UNK, UNK
     Route: 003
     Dates: start: 20110103, end: 20110107
  3. TOPLEXIL [Suspect]
     Dosage: UNK, UNK
     Route: 048
     Dates: start: 20110103, end: 20110107
  4. ACETAMINOPHEN [Suspect]
     Indication: PYREXIA
     Dosage: UNK, UNK
     Route: 048
     Dates: start: 20110103, end: 20110107
  5. LEVOFLOXACIN [Suspect]
     Indication: ANTIBIOTIC THERAPY
     Dosage: 500 MG, ONCE/SINGLE
     Route: 048
     Dates: start: 20110106, end: 20110106
  6. IBUPROFEN [Suspect]
     Indication: PYREXIA
     Dosage: 400 MG, TID
     Route: 048
     Dates: start: 20110103, end: 20110107
  7. DETURGYLONE (PREDNISOLONE SODIUM PHOSPHATE/OXYMETAZOLINE HCL) [Suspect]
     Dosage: UNK, UNK
     Route: 045
     Dates: start: 20110103, end: 20110107

REACTIONS (5)
  - FUNGAL INFECTION [None]
  - SWELLING [None]
  - PYREXIA [None]
  - PHARYNGITIS [None]
  - RASH ERYTHEMATOUS [None]
